FAERS Safety Report 8847092 (Version 1)
Quarter: 2012Q4

REPORT INFORMATION
  Report Type: Spontaneous
  Country: GB (occurrence: None)
  Receive Date: 20121016
  Receipt Date: 20121016
  Transmission Date: 20130627
  Serious: Yes (Other)
  Sender: FDA-Public Use
  Company Number: 2012-4602

PATIENT
  Age: 68 Year
  Sex: Female
  Weight: 92 kg

DRUGS (10)
  1. LANREOTIDE [Suspect]
     Indication: CARCINOID SYNDROME
     Route: 058
     Dates: start: 201207
  2. AMITRIPTYLINE (AMITRIPTYLINE) [Concomitant]
  3. ASPIRIN (ACETYLSALICYLIC ACID) [Concomitant]
  4. BISOPROLOL (BISOPROLOL) [Concomitant]
  5. CANDESARTAN (CANDESARTAN) [Concomitant]
  6. FUROSEMIDE (FUROSEMIDE) [Concomitant]
  7. GLYCERYL TRINITRATE (GLYCERYL TRINITRATE) [Concomitant]
  8. LANSOPRAZOLE (LANSOPRAZOLE) [Concomitant]
  9. MEBEVERINE (MEBEVERINE) [Concomitant]
  10. WARFARIN (WARFARIN) [Concomitant]

REACTIONS (1)
  - International normalised ratio fluctuation [None]
